FAERS Safety Report 12361188 (Version 2)
Quarter: 2016Q2

REPORT INFORMATION
  Report Type: Spontaneous
  Country: US (occurrence: US)
  Receive Date: 20160512
  Receipt Date: 20160518
  Transmission Date: 20160815
  Serious: Yes (Other)
  Sender: FDA-Public Use
  Company Number: US-WATSON-2016-09812

PATIENT
  Age: 66 Year
  Sex: Male

DRUGS (1)
  1. MORPHINE ER (AELLC) [Suspect]
     Active Substance: MORPHINE
     Indication: ANALGESIC THERAPY
     Dosage: 30 MG, UNK
     Route: 048

REACTIONS (2)
  - Overdose [Unknown]
  - Respiratory depression [Unknown]

NARRATIVE: CASE EVENT DATE: 20100503
